FAERS Safety Report 15842487 (Version 2)
Quarter: 2019Q1

REPORT INFORMATION
  Report Type: Report from Study
  Country: IL (occurrence: IL)
  Receive Date: 20190118
  Receipt Date: 20190328
  Transmission Date: 20190417
  Serious: Yes (Other)
  Sender: FDA-Public Use
  Company Number: IL-MYLANLABS-2019M1004018

PATIENT
  Age: 42 Year
  Sex: Female

DRUGS (3)
  1. LEVONORGESTREL MYLAN [Suspect]
     Active Substance: LEVONORGESTREL
     Indication: PRODUCT USED FOR UNKNOWN INDICATION
     Dosage: 20 MICROGRAM, QD CONT
     Route: 015
     Dates: start: 20120830, end: 20180104
  2. LEVONORGESTREL MYLAN [Suspect]
     Active Substance: LEVONORGESTREL
     Dosage: 20 MICROGRAM, QD CONT
     Route: 015
     Dates: start: 20180104, end: 201901
  3. PROGYLUTON [Suspect]
     Active Substance: ESTRADIOL VALERATE\NORGESTREL
     Indication: GENITAL HAEMORRHAGE
     Dosage: UNK
     Route: 048
     Dates: start: 2018

REACTIONS (7)
  - Drug ineffective [Unknown]
  - Device expulsion [Recovered/Resolved]
  - Genital haemorrhage [Unknown]
  - Amenorrhoea [Recovered/Resolved]
  - Product use issue [Unknown]
  - Polycystic ovaries [Unknown]
  - Device issue [Unknown]

NARRATIVE: CASE EVENT DATE: 2012
